FAERS Safety Report 5554541-4 (Version None)
Quarter: 2007Q4

REPORT INFORMATION
  Report Type: 
  Country: None (occurrence: None)
  Receive Date: 20071130
  Receipt Date: 20070723
  Transmission Date: 20080405
  Serious: No
  Sender: FDA-Public Use
  Company Number: US200706004970

PATIENT
  Age: 69 Year
  Sex: Male
  Weight: 117.5 kg

DRUGS (11)
  1. BYETTA [Suspect]
     Indication: TYPE 2 DIABETES MELLITUS
     Dosage: 5 UG, 2/D, SUBCUTANEOUS
     Route: 058
     Dates: start: 20070301, end: 20070331
  2. BYETTA [Suspect]
     Dosage: 10 UG, 2/D, SUBCUTANEOUS
     Route: 058
     Dates: start: 20070410
  3. ORAL ANTIDIABETICS [Concomitant]
  4. FUROSEMIDE [Concomitant]
  5. SPIRONOLACTONE [Concomitant]
  6. ATENOLOL [Concomitant]
  7. ZETIA [Concomitant]
  8. DYNACIRC [Concomitant]
  9. LIPITOR [Concomitant]
  10. CLARINEX [Concomitant]
  11. ASPIRIN [Concomitant]

REACTIONS (4)
  - BLOOD GLUCOSE DECREASED [None]
  - PIGMENTATION DISORDER [None]
  - SWELLING [None]
  - WEIGHT INCREASED [None]
